FAERS Safety Report 14580766 (Version 1)
Quarter: 2018Q1

REPORT INFORMATION
  Report Type: Report from Study
  Country: US (occurrence: US)
  Receive Date: 20180228
  Receipt Date: 20180228
  Transmission Date: 20180509
  Serious: No
  Sender: FDA-Public Use
  Company Number: US-CELGENEUS-USA-20180208614

PATIENT

DRUGS (1)
  1. OTEZLA [Suspect]
     Active Substance: APREMILAST
     Indication: PRODUCT USED FOR UNKNOWN INDICATION
     Route: 048

REACTIONS (7)
  - Unevaluable event [Recovered/Resolved]
  - Therapy non-responder [Unknown]
  - Depression [Recovered/Resolved]
  - Emotional disorder [Recovered/Resolved]
  - Libido disorder [Recovered/Resolved]
  - Abdominal discomfort [Recovered/Resolved]
  - Personality change [Recovered/Resolved]
